FAERS Safety Report 9960652 (Version 1)
Quarter: 2014Q1

REPORT INFORMATION
  Report Type: Spontaneous
  Country: US (occurrence: None)
  Receive Date: 20140228
  Receipt Date: 20140228
  Transmission Date: 20141002
  Serious: Yes (Other)
  Sender: FDA-Public Use
  Company Number: JPI-P-021046

PATIENT
  Age: 40 Year
  Sex: Female
  Weight: 76.4 kg

DRUGS (12)
  1. XYREM [Suspect]
     Indication: NARCOLEPSY
     Route: 048
     Dates: start: 20120126, end: 2012
  2. XYREM [Suspect]
     Indication: CATAPLEXY
     Route: 048
     Dates: start: 20120126, end: 2012
  3. METHOTREXATE (METHOTREXATE) [Suspect]
     Indication: RHEUMATOID ARTHRITIS
     Dates: end: 2013
  4. PROVIGIL (MODAFINIL) [Concomitant]
  5. DETROL LA (TOLTERODINE L-TARTRATE) [Concomitant]
  6. SYNTROID (LEVOTHYROXINE SODIUM) [Concomitant]
  7. CALCIUM (CALCIUM) [Concomitant]
  8. MAGNESIUM (ALUMINUM HYDROXIDE, MAGNESIUM HYDROXIDE) [Concomitant]
  9. VITAMIN C (ASCORBIC ACID) [Concomitant]
  10. TRAMADOL (TRAMADOL HYDROCHLORIDE) [Concomitant]
  11. NAPROXIN (NAPROXEN) [Concomitant]
  12. FOLIC ACID (FOLIC ACID) [Concomitant]

REACTIONS (3)
  - Rheumatoid arthritis [None]
  - Condition aggravated [None]
  - Nausea [None]
